FAERS Safety Report 7378756-8 (Version None)
Quarter: 2011Q1

REPORT INFORMATION
  Report Type: 
  Country: None (occurrence: None)
  Receive Date: 20110328
  Receipt Date: 20110324
  Transmission Date: 20110831
  Serious: Yes (Life-Threatening, Other)
  Sender: FDA-Public Use
  Company Number: US-ASTRAZENECA-2011SE16797

PATIENT
  Age: 249 Month
  Sex: Female
  Weight: 63.5 kg

DRUGS (1)
  1. SEROQUEL [Suspect]
     Indication: MENTAL DISORDER
     Route: 048

REACTIONS (3)
  - SUICIDE ATTEMPT [None]
  - INTENTIONAL SELF-INJURY [None]
  - DRUG DOSE OMISSION [None]
